FAERS Safety Report 4263810-X (Version None)
Quarter: 2004Q1

REPORT INFORMATION
  Report Type: 
  Country: None (occurrence: None)
  Receive Date: 20040105
  Receipt Date: 20040105
  Transmission Date: 20041129
  Serious: No
  Sender: FDA-Public Use
  Company Number: None

PATIENT
  Age: 21 Year
  Sex: Female
  Weight: 73.9363 kg

DRUGS (1)
  1. LO/OVRAL-28 [Suspect]
     Indication: MENSTRUATION IRREGULAR

REACTIONS (1)
  - MENSTRUATION IRREGULAR [None]
